FAERS Safety Report 16939048 (Version 1)
Quarter: 2019Q4

REPORT INFORMATION
  Report Type: Spontaneous
  Country: BR (occurrence: BR)
  Receive Date: 20191020
  Receipt Date: 20191020
  Transmission Date: 20200122
  Serious: Yes (Other)
  Sender: FDA-Public Use
  Company Number: BR-EMD SERONO-9122948

PATIENT
  Age: 37 Year
  Sex: Female
  Weight: 60 kg

DRUGS (7)
  1. VERTIX                             /00505202/ [Concomitant]
     Indication: SUICIDE ATTEMPT
     Dates: start: 20191011, end: 20191011
  2. ONDANSETRON [Concomitant]
     Active Substance: ONDANSETRON
     Indication: SUICIDE ATTEMPT
     Dates: start: 20191011, end: 20191011
  3. TERBINAFINE. [Concomitant]
     Active Substance: TERBINAFINE
     Indication: SUICIDE ATTEMPT
     Dates: start: 20191011, end: 20191011
  4. TANDRILAX [Concomitant]
     Active Substance: ACETAMINOPHEN\CAFFEINE\CARISOPRODOL\DICLOFENAC SODIUM
     Indication: SUICIDE ATTEMPT
     Dates: start: 20191011, end: 20191011
  5. METFORMIN HYDROCHLORIDE. [Suspect]
     Active Substance: METFORMIN HYDROCHLORIDE
     Indication: SUICIDE ATTEMPT
     Dosage: 5.950 MG (7 TABLETS)
     Route: 048
     Dates: start: 20191011, end: 20191011
  6. GLICLAZIDE [Concomitant]
     Active Substance: GLICLAZIDE
     Indication: SUICIDE ATTEMPT
     Dates: start: 20191011, end: 20191011
  7. PACO [Concomitant]
     Active Substance: ACETAMINOPHEN\CODEINE PHOSPHATE
     Indication: SUICIDE ATTEMPT
     Dates: start: 20191011, end: 20191011

REACTIONS (3)
  - Sinus tachycardia [Unknown]
  - Intentional product misuse [Unknown]
  - Somnolence [Not Recovered/Not Resolved]

NARRATIVE: CASE EVENT DATE: 20191011
